FAERS Safety Report 23053823 (Version 4)
Quarter: 2023Q4

REPORT INFORMATION
  Report Type: Report from Study
  Country: US (occurrence: US)
  Receive Date: 20231011
  Receipt Date: 20231220
  Transmission Date: 20240110
  Serious: No
  Sender: FDA-Public Use
  Company Number: US-002147023-NVSC2023US216768

PATIENT
  Sex: Female

DRUGS (2)
  1. KESIMPTA [Suspect]
     Active Substance: OFATUMUMAB
     Indication: Product used for unknown indication
     Dosage: UNK
     Route: 065
     Dates: start: 20230927
  2. TYLENOL [Concomitant]
     Active Substance: ACETAMINOPHEN
     Indication: Product used for unknown indication
     Dosage: UNK
     Route: 065

REACTIONS (10)
  - Micturition urgency [Unknown]
  - Escherichia urinary tract infection [Unknown]
  - Pollakiuria [Unknown]
  - Pyrexia [Unknown]
  - Fatigue [Unknown]
  - Chills [Unknown]
  - Pain [Unknown]
  - Injection site pain [Unknown]
  - Muscle spasms [Unknown]
  - Blepharospasm [Unknown]
